FAERS Safety Report 8651738 (Version 6)
Quarter: 2013Q2

REPORT INFORMATION
  Report Type: Report from Study
  Country: AU (occurrence: AU)
  Receive Date: 20120706
  Receipt Date: 20130404
  Transmission Date: 20140414
  Serious: Yes (Hospitalization, Other)
  Sender: FDA-Public Use
  Company Number: PHHY2012AU055629

PATIENT
  Age: 29 Year
  Sex: Male

DRUGS (2)
  1. CLOZARIL [Suspect]
     Indication: SCHIZOPHRENIA
     Dosage: 550 MG, UNK
     Dates: start: 20051109
  2. CLOZARIL [Suspect]
     Dosage: 200 MG, NOCTE
     Dates: start: 20120626, end: 20120708

REACTIONS (17)
  - Cellulitis [Unknown]
  - Influenza [Unknown]
  - Blood potassium decreased [Unknown]
  - Rheumatoid arthritis [Unknown]
  - Arthralgia [Unknown]
  - Malaise [Unknown]
  - Pain in extremity [Unknown]
  - Antipsychotic drug level increased [Unknown]
  - Delirium [Unknown]
  - Pyrexia [Not Recovered/Not Resolved]
  - Myalgia [Unknown]
  - Upper respiratory tract infection [Unknown]
  - Ear infection [Recovering/Resolving]
  - Asthma [Unknown]
  - Sedation [Unknown]
  - Cough [Unknown]
  - Constipation [Recovering/Resolving]
